FAERS Safety Report 19249554 (Version 2)
Quarter: 2021Q4

REPORT INFORMATION
  Report Type: Spontaneous
  Country: US (occurrence: US)
  Receive Date: 20210512
  Receipt Date: 20211005
  Transmission Date: 20220303
  Serious: Yes (Death)
  Sender: FDA-Public Use
  Company Number: US-ROCHE-2824096

PATIENT
  Sex: Male

DRUGS (11)
  1. AVASTIN [Suspect]
     Active Substance: BEVACIZUMAB
     Indication: Colon cancer
     Route: 042
     Dates: start: 20120924, end: 2015
  2. AVASTIN [Suspect]
     Active Substance: BEVACIZUMAB
     Route: 042
     Dates: start: 20190611, end: 20190614
  3. XELODA [Suspect]
     Active Substance: CAPECITABINE
     Indication: Colon cancer metastatic
     Route: 048
     Dates: start: 2015, end: 201608
  4. LOVENOX [Concomitant]
     Active Substance: ENOXAPARIN SODIUM
  5. WARFARIN [Concomitant]
     Active Substance: WARFARIN
     Indication: Anticoagulant therapy
     Route: 048
     Dates: start: 1988, end: 20190611
  6. OXALIPLATIN [Concomitant]
     Active Substance: OXALIPLATIN
     Indication: Colon cancer
     Dates: start: 2012, end: 2015
  7. FLUOROURACIL [Concomitant]
     Active Substance: FLUOROURACIL
     Indication: Colon cancer
     Dates: start: 2012, end: 2015
  8. MITOMYCIN [Concomitant]
     Active Substance: MITOMYCIN
     Indication: Neoplasm malignant
     Route: 042
     Dates: start: 2016, end: 2016
  9. PEMETREXED [Concomitant]
     Active Substance: PEMETREXED
     Indication: Neoplasm malignant
     Route: 042
     Dates: start: 2016, end: 2016
  10. STIVARGA [Concomitant]
     Active Substance: REGORAFENIB
     Route: 048
  11. LONSURF [Concomitant]
     Active Substance: TIPIRACIL HYDROCHLORIDE\TRIFLURIDINE
     Route: 048

REACTIONS (5)
  - Haemorrhage [Fatal]
  - Weight increased [Recovered/Resolved]
  - Swelling [Recovered/Resolved]
  - Alopecia [Unknown]
  - Diarrhoea [Unknown]
